FAERS Safety Report 7460521-4 (Version None)
Quarter: 2011Q2

REPORT INFORMATION
  Report Type: 
  Country: None (occurrence: None)
  Receive Date: 20110505
  Receipt Date: 20110414
  Transmission Date: 20111010
  Serious: Yes (Other)
  Sender: FDA-Public Use
  Company Number: US-BAYER-201018676NA

PATIENT
  Age: 52 Year
  Sex: Male
  Weight: 124.72 kg

DRUGS (39)
  1. NITROGLYCERIN [Concomitant]
     Dosage: 1 INCH Q6H TO CHEST WALL
  2. CEFAZOLIN [Concomitant]
     Dosage: 2 MG, UNK
     Route: 042
     Dates: start: 20050214, end: 20050214
  3. NOVOLOG [Concomitant]
     Dosage: 35 UNITS BEFORE BREAKFAST AND BEFORE DINNER
     Route: 058
     Dates: start: 20040101
  4. LASIX [Concomitant]
     Dosage: 40 MG, BID
     Route: 042
  5. NITROGLYCERIN [Concomitant]
     Dosage: DRIP
     Route: 042
     Dates: start: 20050214, end: 20050214
  6. HEPARIN [Concomitant]
     Dosage: 35000 UNITS
     Route: 042
     Dates: start: 20050214, end: 20050214
  7. HEPARIN [Concomitant]
     Dosage: 10000 UNITS, CARDIOPULMONARY BYPASS
     Dates: start: 20050214, end: 20050214
  8. PLATELETS [Concomitant]
     Dosage: 12 U, UNK
     Route: 042
     Dates: start: 20050214, end: 20050214
  9. LISINOPRIL [Concomitant]
     Dosage: 10 MG, UNK
     Route: 048
  10. UNASYN [Concomitant]
     Dosage: 3 GMS EVERY 6-8 HOURS
     Route: 042
     Dates: start: 20020201
  11. ASPIRIN [Concomitant]
     Dosage: 325 MG, QD
     Route: 048
     Dates: start: 19900101, end: 20050101
  12. AVANDIA [Concomitant]
     Dosage: UNK
     Dates: start: 20040101
  13. NORVASC [Concomitant]
     Dosage: 5 MG, QD
     Route: 048
  14. LOVENOX [Concomitant]
     Dosage: 60 MG, BID
     Route: 058
     Dates: start: 20050208
  15. LOPRESSOR [Concomitant]
     Dosage: 100 MG, BID
     Route: 048
  16. SUFENTA PRESERVATIVE FREE [Concomitant]
     Dosage: 1000 MG, UNK
     Route: 042
     Dates: start: 20050214, end: 20050214
  17. SOLU-MEDROL [Concomitant]
     Dosage: 250 MG, CARDIOPULMONARY BYPASS
     Dates: start: 20050214, end: 20050214
  18. CLONIDINE [Concomitant]
     Dosage: 0.1 MG, PRN
     Route: 048
     Dates: start: 20050201
  19. TRASYLOL [Suspect]
     Indication: CORONARY ARTERY BYPASS
     Dosage: 1ML TEST DOSE, 100 ML LOADING DOSE
     Dates: start: 20050214, end: 20050214
  20. TYLENOL REGULAR [Concomitant]
     Dosage: 650MG Q4-5H PRN FOR HEADACHES
     Route: 048
  21. CEFAZOLIN [Concomitant]
     Dosage: 2 MG, UNK
     Route: 042
     Dates: start: 20050214, end: 20050214
  22. VECURONIUM BROMIDE [Concomitant]
     Dosage: 26 MG, UNK
     Route: 042
     Dates: start: 20050214, end: 20050214
  23. PROPOFOL [Concomitant]
     Dosage: 50MG/KG/MIN
     Route: 042
     Dates: start: 20050214, end: 20050214
  24. HEPARIN [Concomitant]
     Dosage: 2000 U, UNK
     Route: 042
     Dates: start: 20050214, end: 20050214
  25. NITROGLYCERIN [Concomitant]
     Dosage: 0.4MG EVERY 5 MINUTES PRN PAIN
     Route: 060
  26. REMIFENTANIL [Concomitant]
     Dosage: 10MG/KG/MIN
     Route: 042
     Dates: start: 20050214, end: 20050214
  27. PROTAMINE SULFATE [Concomitant]
     Dosage: 500 MG, CARDIOPULMONARY BYPASS
     Dates: start: 20050214, end: 20050214
  28. AUGMENTIN [Concomitant]
     Dosage: 500 MG, TID
     Route: 048
     Dates: start: 20020201
  29. CIPRO [Concomitant]
     Dosage: 500 MG, BID
     Route: 048
     Dates: start: 20040501
  30. TEQUIN [Concomitant]
     Dosage: 400 MG, QD
     Route: 042
     Dates: start: 20040501, end: 20040501
  31. SUCCINYLCHOLINE CHLORIDE [Concomitant]
     Dosage: 160 MG, UNK
     Route: 042
     Dates: start: 20050214, end: 20050214
  32. RED BLOOD CELLS [Concomitant]
     Dosage: 4 U, UNK
     Route: 042
     Dates: start: 20050214, end: 20050214
  33. FRESH FROZEN PLASMA [Concomitant]
     Dosage: 2 U, UNK
     Route: 042
     Dates: start: 20050214, end: 20050214
  34. SOLU-MEDROL [Concomitant]
     Dosage: 125 MG, UNK
     Route: 042
     Dates: start: 20050214, end: 20050214
  35. CLINDAMYCIN [Concomitant]
     Dosage: 600 MG, TID
     Route: 042
     Dates: start: 20040501, end: 20040501
  36. MIDAZOLAM [Concomitant]
     Dosage: 15 MG, UNK
     Route: 042
     Dates: start: 20050214, end: 20050214
  37. ETOMIDATE [Concomitant]
     Dosage: 36 MG, UNK
     Route: 042
     Dates: start: 20050214, end: 20050214
  38. RED BLOOD CELLS [Concomitant]
     Dosage: 2 UNK, UNK
     Dates: start: 20050303
  39. INSULIN [Concomitant]
     Dosage: TIMES 1
     Route: 042
     Dates: start: 20050214, end: 20050214

REACTIONS (8)
  - FEAR [None]
  - RENAL IMPAIRMENT [None]
  - PAIN [None]
  - RENAL FAILURE [None]
  - RENAL INJURY [None]
  - STRESS [None]
  - ANXIETY [None]
  - EMOTIONAL DISTRESS [None]
